FAERS Safety Report 20437445 (Version 13)
Quarter: 2022Q2

REPORT INFORMATION
  Report Type: Spontaneous
  Country: US (occurrence: US)
  Receive Date: 20220207
  Receipt Date: 20220524
  Transmission Date: 20220721
  Serious: Yes (Hospitalization, Other)
  Sender: FDA-Public Use
  Company Number: US-ELI_LILLY_AND_COMPANY-US202202001614

PATIENT
  Age: 10 Year
  Sex: Male

DRUGS (11)
  1. ADCIRCA [Suspect]
     Active Substance: TADALAFIL
     Indication: Pulmonary arterial hypertension
     Dosage: 40 MG, DAILY
     Route: 048
     Dates: start: 20220125
  2. ADCIRCA [Suspect]
     Active Substance: TADALAFIL
     Dosage: 40 MG, DAILY
     Route: 048
     Dates: start: 202201
  3. KEFLEX [Suspect]
     Active Substance: CEPHALEXIN
     Indication: Product used for unknown indication
     Dosage: UNK UNK, UNKNOWN
     Route: 065
  4. REMODULIN [Suspect]
     Active Substance: TREPROSTINIL
     Indication: Pulmonary arterial hypertension
     Dosage: 0.056UG/KG/, DAILY
     Route: 042
     Dates: start: 20211229
  5. REMODULIN [Suspect]
     Active Substance: TREPROSTINIL
     Dosage: UNK UNK, UNKNOWN
     Route: 042
     Dates: start: 20220125
  6. REMODULIN [Suspect]
     Active Substance: TREPROSTINIL
     Dosage: 44 NG/KG/MIN, DAILY
     Route: 042
     Dates: start: 20220204
  7. REMODULIN [Suspect]
     Active Substance: TREPROSTINIL
     Dosage: 48 NG/KG/MIN, DAILY
     Route: 042
  8. REMODULIN [Suspect]
     Active Substance: TREPROSTINIL
     Dosage: 50 NG/KG/MIN, DAILY
     Route: 042
  9. REMODULIN [Suspect]
     Active Substance: TREPROSTINIL
     Dosage: 0.046 UG/KG, DAILY
     Route: 042
  10. REMODULIN [Suspect]
     Active Substance: TREPROSTINIL
     Dosage: 56 NG/KG/MIN, DAILY
     Route: 042
  11. REMODULIN [Suspect]
     Active Substance: TREPROSTINIL
     Dosage: UNK UNK, UNKNOWN (60 NG/KG/MIN)
     Route: 065
     Dates: start: 20220430

REACTIONS (16)
  - Haemorrhage [Unknown]
  - Epistaxis [Unknown]
  - Device related infection [Unknown]
  - Erythema [Unknown]
  - Blister [Unknown]
  - Irritability [Unknown]
  - Drug hypersensitivity [Unknown]
  - Scab [Unknown]
  - Infusion site discharge [Unknown]
  - Pruritus [Unknown]
  - Pain [Recovered/Resolved]
  - Flushing [Not Recovered/Not Resolved]
  - Headache [Recovered/Resolved]
  - Rash [Unknown]
  - Headache [Not Recovered/Not Resolved]
  - Off label use [Unknown]

NARRATIVE: CASE EVENT DATE: 20220228
